FAERS Safety Report 25739102 (Version 2)
Quarter: 2025Q3

REPORT INFORMATION
  Report Type: Spontaneous
  Country: US (occurrence: US)
  Receive Date: 20250829
  Receipt Date: 20250917
  Transmission Date: 20251020
  Serious: Yes (Death)
  Sender: CSL BEHRING
  Company Number: US-BEH-2025216825

PATIENT
  Age: 55 Year
  Sex: Female
  Weight: 67.59 kg

DRUGS (3)
  1. HIZENTRA [Suspect]
     Active Substance: HUMAN IMMUNOGLOBULIN G
     Indication: Immunodeficiency common variable
     Dosage: 18 G, QW
     Route: 058
     Dates: start: 20190820
  2. HIZENTRA [Suspect]
     Active Substance: HUMAN IMMUNOGLOBULIN G
     Route: 058
  3. HIZENTRA [Suspect]
     Active Substance: HUMAN IMMUNOGLOBULIN G
     Route: 058

REACTIONS (1)
  - Road traffic accident [Fatal]

NARRATIVE: CASE EVENT DATE: 20250819
